FAERS Safety Report 7181323-2 (Version None)
Quarter: 2010Q4

REPORT INFORMATION
  Report Type: 
  Country: None (occurrence: None)
  Receive Date: 20101221
  Receipt Date: 20100421
  Transmission Date: 20110411
  Serious: No
  Sender: FDA-Public Use
  Company Number: US-AMGEN-TCS407523

PATIENT

DRUGS (1)
  1. ENBREL [Suspect]
     Indication: JUVENILE ARTHRITIS
     Dosage: UNK UNK, UNK

REACTIONS (2)
  - ALPHA TUMOUR NECROSIS FACTOR INCREASED [None]
  - THERAPEUTIC RESPONSE UNEXPECTED [None]
